FAERS Safety Report 6887177-3 (Version None)
Quarter: 2010Q3

REPORT INFORMATION
  Report Type: 
  Country: None (occurrence: None)
  Receive Date: 20100730
  Receipt Date: 20100722
  Transmission Date: 20110219
  Serious: Yes (Other)
  Sender: FDA-Public Use
  Company Number: GB-PFIZER INC-2010082800

PATIENT
  Age: 70 Year
  Sex: Female

DRUGS (1)
  1. ISTIN [Suspect]
     Indication: HYPERTENSION
     Dosage: 10 MG, UNK
     Route: 048
     Dates: start: 20100607, end: 20100617

REACTIONS (3)
  - EYELID OEDEMA [None]
  - JOINT SWELLING [None]
  - SKIN BURNING SENSATION [None]
